FAERS Safety Report 7120787-7 (Version None)
Quarter: 2010Q4

REPORT INFORMATION
  Report Type: 
  Country: None (occurrence: None)
  Receive Date: 20101124
  Receipt Date: 20101116
  Transmission Date: 20110411
  Serious: Yes (Other)
  Sender: FDA-Public Use
  Company Number: CA-JNJFOC-20101106324

PATIENT
  Sex: Female
  Weight: 77.2 kg

DRUGS (2)
  1. REMICADE [Suspect]
     Indication: CROHN'S DISEASE
     Dosage: TOTAL 39 INFUSIONS
     Route: 042
  2. REMICADE [Suspect]
     Route: 042

REACTIONS (1)
  - BLINDNESS [None]
